FAERS Safety Report 7275593-X (Version None)
Quarter: 2011Q1

REPORT INFORMATION
  Report Type: 
  Country: None (occurrence: None)
  Receive Date: 20110204
  Receipt Date: 20110131
  Transmission Date: 20110831
  Serious: Yes (Hospitalization, Other)
  Sender: FDA-Public Use
  Company Number: JP-ABBOTT-11P-087-0701869-00

PATIENT
  Age: 35 Year
  Sex: Male

DRUGS (6)
  1. MYCOBUTIN [Suspect]
     Indication: ATYPICAL MYCOBACTERIUM TEST POSITIVE
     Route: 048
     Dates: start: 20091120, end: 20091211
  2. ATAZANAVIR SULFATE [Suspect]
     Indication: HIV INFECTION
     Dosage: 300 MG/DAY
     Route: 048
     Dates: start: 20091022, end: 20091202
  3. DARUNAVIR ETHANOLATE [Suspect]
     Indication: HIV INFECTION
     Dosage: 800 MG/DAY
     Route: 048
     Dates: start: 20091203
  4. NORVIR [Suspect]
     Indication: HIV INFECTION
     Dosage: 100 MG/DAY
     Route: 048
     Dates: start: 20091022
  5. EPZICOM [Suspect]
     Indication: HIV INFECTION
     Route: 048
     Dates: start: 20091211
  6. EMTRICITABINE/TENOFOVIR DISOPROXIL FUMARATE [Suspect]
     Indication: HIV INFECTION
     Route: 048
     Dates: start: 20091022, end: 20091202

REACTIONS (3)
  - CYTOMEGALOVIRUS CHORIORETINITIS [None]
  - IMMUNE RECONSTITUTION SYNDROME [None]
  - MYCOBACTERIUM AVIUM COMPLEX INFECTION [None]
